FAERS Safety Report 5623273-6 (Version None)
Quarter: 2008Q1

REPORT INFORMATION
  Report Type: 
  Country: None (occurrence: None)
  Receive Date: 20080206
  Receipt Date: 20080128
  Transmission Date: 20080703
  Serious: Yes (Other)
  Sender: FDA-Public Use
  Company Number: 2008AP000306

PATIENT
  Age: 35 Year
  Sex: Female

DRUGS (17)
  1. PAROXETINE HCL [Suspect]
     Dosage: 10 MG;PO;QD; 40 MG;PO;QD; 20 MG;PO;QD; 30MG;PO;QOD; 40MG;QOD
     Route: 048
     Dates: start: 19960103
  2. PAROXETINE HCL [Suspect]
     Dosage: 10 MG;PO;QD; 40 MG;PO;QD; 20 MG;PO;QD; 30MG;PO;QOD; 40MG;QOD
     Route: 048
     Dates: start: 20010801
  3. PAROXETINE HCL [Suspect]
     Dosage: 10 MG;PO;QD; 40 MG;PO;QD; 20 MG;PO;QD; 30MG;PO;QOD; 40MG;QOD
     Route: 048
     Dates: start: 20020111
  4. PAROXETINE HCL [Suspect]
     Dosage: 10 MG;PO;QD; 40 MG;PO;QD; 20 MG;PO;QD; 30MG;PO;QOD; 40MG;QOD
     Route: 048
     Dates: start: 20020125
  5. PAROXETINE HCL [Suspect]
     Dosage: 10 MG;PO;QD; 40 MG;PO;QD; 20 MG;PO;QD; 30MG;PO;QOD; 40MG;QOD
     Route: 048
     Dates: start: 20020131
  6. PAROXETINE HCL [Suspect]
     Dosage: 10 MG;PO;QD; 40 MG;PO;QD; 20 MG;PO;QD; 30MG;PO;QOD; 40MG;QOD
     Route: 048
     Dates: start: 20020601
  7. PAROXETINE HCL [Suspect]
     Dosage: 10 MG;PO;QD; 40 MG;PO;QD; 20 MG;PO;QD; 30MG;PO;QOD; 40MG;QOD
     Route: 048
     Dates: start: 20021001
  8. PAROXETINE HCL [Suspect]
     Dosage: 10 MG;PO;QD; 40 MG;PO;QD; 20 MG;PO;QD; 30MG;PO;QOD; 40MG;QOD
     Route: 048
     Dates: start: 20021101
  9. PAROXETINE HCL [Suspect]
     Dosage: 10 MG;PO;QD; 40 MG;PO;QD; 20 MG;PO;QD; 30MG;PO;QOD; 40MG;QOD
     Route: 048
     Dates: start: 20030501
  10. PAROXETINE HCL [Suspect]
     Dosage: 10 MG;PO;QD; 40 MG;PO;QD; 20 MG;PO;QD; 30MG;PO;QOD; 40MG;QOD
     Route: 048
     Dates: start: 20040322
  11. PAROXETINE HCL [Suspect]
     Dosage: 10 MG;PO;QD; 40 MG;PO;QD; 20 MG;PO;QD; 30MG;PO;QOD; 40MG;QOD
     Route: 048
     Dates: start: 20040323
  12. PAROXETINE HCL [Suspect]
     Dosage: 10 MG;PO;QD; 40 MG;PO;QD; 20 MG;PO;QD; 30MG;PO;QOD; 40MG;QOD
     Route: 048
     Dates: start: 20041101
  13. PAROXETINE HCL [Suspect]
     Dosage: 10 MG;PO;QD; 40 MG;PO;QD; 20 MG;PO;QD; 30MG;PO;QOD; 40MG;QOD
     Route: 048
     Dates: start: 20050301
  14. DIAZEPAM [Concomitant]
  15. FLUOXETINE [Concomitant]
  16. VENLAFAXINE HCL [Concomitant]
  17. MIRTAZAPINE [Concomitant]

REACTIONS (40)
  - ABORTION SPONTANEOUS [None]
  - AGITATION [None]
  - ANXIETY [None]
  - APATHY [None]
  - CHOLELITHIASIS [None]
  - CONDITION AGGRAVATED [None]
  - CONFUSIONAL STATE [None]
  - CONTUSION [None]
  - DECREASED APPETITE [None]
  - DEPRESSED MOOD [None]
  - DEPRESSION [None]
  - DIZZINESS [None]
  - DRUG EXPOSURE DURING PREGNANCY [None]
  - DYSPHAGIA [None]
  - DYSPNOEA [None]
  - EARLY MORNING AWAKENING [None]
  - ECONOMIC PROBLEM [None]
  - FEELING ABNORMAL [None]
  - FLUSHING [None]
  - FOOD CRAVING [None]
  - HEART RATE INCREASED [None]
  - HEPATIC FUNCTION ABNORMAL [None]
  - HYPERVENTILATION [None]
  - INSOMNIA [None]
  - LETHARGY [None]
  - LIVER FUNCTION TEST ABNORMAL [None]
  - LOSS OF EMPLOYMENT [None]
  - NAUSEA [None]
  - NIGHT SWEATS [None]
  - NIGHTMARE [None]
  - OVERDOSE [None]
  - PANIC ATTACK [None]
  - PARAESTHESIA [None]
  - PREGNANCY [None]
  - RESTLESSNESS [None]
  - RETAINED PRODUCTS OF CONCEPTION [None]
  - SLEEP DISORDER [None]
  - SUICIDAL IDEATION [None]
  - TEARFULNESS [None]
  - WITHDRAWAL SYNDROME [None]
